FAERS Safety Report 6173263-2 (Version None)
Quarter: 2009Q2

REPORT INFORMATION
  Report Type: 
  Country: None (occurrence: None)
  Receive Date: 20090430
  Receipt Date: 20090422
  Transmission Date: 20091009
  Serious: No
  Sender: FDA-Public Use
  Company Number: US-B.I. PHARMACEUTICALS,INC./RIDGEFIELD-2009-BP-05093BP

PATIENT
  Age: 58 Year
  Sex: Female

DRUGS (7)
  1. SPIRIVA [Suspect]
     Indication: ASTHMA
     Dosage: 18MCG
     Route: 055
  2. ADVAIR HFA [Concomitant]
     Indication: ASTHMA
     Route: 055
  3. LYRICA [Concomitant]
  4. OXYCONTIN [Concomitant]
     Indication: ARTHRITIS
  5. OXYCONTIN [Concomitant]
     Indication: BACK PAIN
  6. OPANA [Concomitant]
     Indication: ARTHRITIS
  7. OPANA [Concomitant]
     Indication: BACK PAIN

REACTIONS (4)
  - BLOOD PRESSURE DECREASED [None]
  - EXTRASYSTOLES [None]
  - EYE PAIN [None]
  - LACRIMATION INCREASED [None]
